FAERS Safety Report 25858528 (Version 1)
Quarter: 2025Q3

REPORT INFORMATION
  Report Type: Spontaneous
  Country: US (occurrence: US)
  Receive Date: 20250929
  Receipt Date: 20250929
  Transmission Date: 20251020
  Serious: Yes (Other)
  Sender: COOPERSURGICAL
  Company Number: US-COOPERSURGICAL, INC.-2025CPS006974

PATIENT
  Age: 36 Year
  Sex: Female
  Weight: 62.585 kg

DRUGS (1)
  1. PARAGARD T 380A [Suspect]
     Active Substance: COPPER
     Indication: Contraception
     Route: 015
     Dates: start: 20120710

REACTIONS (21)
  - Reproductive complication associated with device [Not Recovered/Not Resolved]
  - Hysterectomy [Recovered/Resolved]
  - Iron deficiency anaemia [Unknown]
  - Device breakage [Recovered/Resolved]
  - Foreign body in reproductive tract [Recovered/Resolved]
  - Complication of device removal [Recovered/Resolved]
  - Emotional distress [Unknown]
  - Sexual dysfunction [Unknown]
  - Complication associated with device [Recovered/Resolved]
  - Secretion discharge [Unknown]
  - Urinary tract infection [Unknown]
  - Dysuria [Unknown]
  - Vaginal discharge [Unknown]
  - Menstruation irregular [Recovered/Resolved]
  - Pain [Recovered/Resolved]
  - Off label use [Unknown]
  - Device use issue [Unknown]
  - Heavy menstrual bleeding [Recovered/Resolved]
  - Abnormal uterine bleeding [Recovered/Resolved]
  - Vaginal infection [Unknown]
  - Bacterial vaginosis [Unknown]

NARRATIVE: CASE EVENT DATE: 20120727
